FAERS Safety Report 4701907-8 (Version None)
Quarter: 2005Q2

REPORT INFORMATION
  Report Type: 
  Country: None (occurrence: None)
  Receive Date: 20050627
  Receipt Date: 20050614
  Transmission Date: 20051028
  Serious: Yes (Other)
  Sender: FDA-Public Use
  Company Number: 2005083258

PATIENT
  Age: 77 Year
  Sex: Male
  Weight: 68.9467 kg

DRUGS (6)
  1. ALDACTONE [Suspect]
     Indication: HYPERALDOSTERONISM
     Dosage: 25 MG (25 MG, QD), ORAL
     Route: 048
     Dates: start: 20050301, end: 20050501
  2. HYTRIN (TERAZOSIN HYDROCHLORIDE0 [Concomitant]
  3. PLENDIL (FELODIPINE0 [Concomitant]
  4. ATENOLOL [Concomitant]
  5. MICARDIS [Concomitant]
  6. CLONIDINE [Concomitant]

REACTIONS (5)
  - BLOOD PRESSURE INCREASED [None]
  - DRUG INEFFECTIVE [None]
  - HYPONATRAEMIA [None]
  - MALAISE [None]
  - UNDERDOSE [None]
